FAERS Safety Report 5028570-3 (Version None)
Quarter: 2006Q2

REPORT INFORMATION
  Report Type: 
  Country: None (occurrence: None)
  Receive Date: 20060615
  Receipt Date: 20060615
  Transmission Date: 20061013
  Serious: Yes (Hospitalization, Other)
  Sender: FDA-Public Use
  Company Number: None

PATIENT
  Age: 64 Year
  Sex: Female
  Weight: 72.5755 kg

DRUGS (2)
  1. LIPITOR [Suspect]
     Dosage: 10 MG 1 DAY
     Dates: start: 20030101
  2. METOPROLO 50 MG [Suspect]
     Dosage: 1/4 TAB

REACTIONS (7)
  - ARTHRALGIA [None]
  - DIFFICULTY IN WALKING [None]
  - DYSSTASIA [None]
  - INSOMNIA [None]
  - PAIN IN EXTREMITY [None]
  - RESPIRATORY DISORDER [None]
  - URTICARIA [None]
